FAERS Safety Report 7353905-6 (Version None)
Quarter: 2011Q1

REPORT INFORMATION
  Report Type: 
  Country: None (occurrence: None)
  Receive Date: 20110315
  Receipt Date: 20110228
  Transmission Date: 20110831
  Serious: Yes (Hospitalization)
  Sender: FDA-Public Use
  Company Number: PHHY2011IE16799

PATIENT
  Age: 53 Year
  Sex: Male

DRUGS (3)
  1. SIROLIMUS [Concomitant]
     Dosage: 2 MG, QD
  2. TACROLIMUS [Concomitant]
     Dosage: 0.5 MG, BID
  3. MYFORTIC [Suspect]
     Indication: LIVER TRANSPLANT
     Dosage: 500 MG, TID

REACTIONS (8)
  - MOVEMENT DISORDER [None]
  - LIVER TRANSPLANT REJECTION [None]
  - DEPRESSED MOOD [None]
  - COGWHEEL RIGIDITY [None]
  - DYSARTHRIA [None]
  - HEADACHE [None]
  - BRADYKINESIA [None]
  - ATAXIA [None]
